FAERS Safety Report 4725139-2 (Version None)
Quarter: 2005Q3

REPORT INFORMATION
  Report Type: 
  Country: None (occurrence: None)
  Receive Date: 20050721
  Receipt Date: 20050609
  Transmission Date: 20060218
  Serious: No
  Sender: FDA-Public Use
  Company Number: 2005SP001357

PATIENT
  Age: 66 Year
  Sex: Female
  Weight: 79.8331 kg

DRUGS (10)
  1. LUNESTA [Suspect]
     Indication: INSOMNIA
     Dosage: 2 MG;HS;ORAL; SEE IMAGE
     Route: 048
     Dates: start: 20050501, end: 20050101
  2. LUNESTA [Suspect]
     Indication: INSOMNIA
     Dosage: 2 MG;HS;ORAL; SEE IMAGE
     Route: 048
     Dates: start: 20050101
  3. POTASSIUM CHLORIDE [Concomitant]
  4. FELODIPINE [Concomitant]
  5. PIROXICAM [Concomitant]
  6. ALPRAZOLAM [Concomitant]
  7. VYTORIN [Concomitant]
  8. PREMARIN [Concomitant]
  9. ASPIRIN [Concomitant]
  10. MULTIVITAMIN [Concomitant]

REACTIONS (1)
  - MIDDLE INSOMNIA [None]
